FAERS Safety Report 24754326 (Version 2)
Quarter: 2025Q3

REPORT INFORMATION
  Report Type: Spontaneous
  Country: CN (occurrence: CN)
  Receive Date: 20241219
  Receipt Date: 20250802
  Transmission Date: 20251021
  Serious: Yes (Hospitalization, Other)
  Sender: ALEXION PHARMACEUTICALS
  Company Number: CN-ASTRAZENECA-202412CHN011517CN

PATIENT
  Age: 57 Year
  Sex: Male
  Weight: 74 kg

DRUGS (4)
  1. BRILINTA [Suspect]
     Active Substance: TICAGRELOR
     Indication: Arteriosclerosis coronary artery
     Dosage: 90 MILLIGRAM, BID
     Dates: start: 20240915, end: 20241201
  2. ALUMINUM [Suspect]
     Active Substance: ALUMINUM
     Indication: Arteriosclerosis coronary artery
     Dosage: 1 DOSAGE FORM, QD
     Dates: start: 20240915, end: 20241201
  3. MAGNESIUM [Suspect]
     Active Substance: MAGNESIUM
  4. ASPIRIN [Suspect]
     Active Substance: ASPIRIN

REACTIONS (5)
  - Upper gastrointestinal haemorrhage [Recovered/Resolved]
  - Dizziness [Recovered/Resolved]
  - Asthenia [Recovered/Resolved]
  - Melaena [Recovered/Resolved]
  - Haemoglobin decreased [Recovered/Resolved]
